FAERS Safety Report 6934771 (Version 4)
Quarter: 2012Q4

REPORT INFORMATION
  Report Type: 
  Country: DE (occurrence: DE)
  Receive Date: 20090312
  Receipt Date: 20120924
  Transmission Date: 20130627
  Serious: Yes (Death, Life-Threatening, Hospitalization)
  Sender: FDA-Public Use
  Company Number: DE-RANBAXY-2009RR-22332

PATIENT
  Age: 70 Year
  Sex: Female
  Weight: 77 kg

DRUGS (6)
  1. VERAPAMIL [Suspect]
     Indication: ATRIAL FIBRILLATION
     Dosage: 120 mg, bid
     Route: 048
  2. ASS ^HEXAL^ [Suspect]
     Indication: ATRIAL FIBRILLATION
     Dosage: 100 mg, qd
     Route: 048
     Dates: end: 20080213
  3. FURORESE [Concomitant]
     Indication: HYPERTENSION
     Dosage: 40 mg, qd
     Route: 048
  4. L-THYROXINE [Concomitant]
     Indication: HYPOTHYROIDISM
     Dosage: 75 ug, qd
     Route: 048
  5. LITALIR [Concomitant]
     Indication: POLYCYTHAEMIA
     Dosage: 500 mg, qd
     Route: 048
  6. PANTOZOL [Concomitant]
     Indication: PROPHYLAXIS AGAINST GASTROINTESTINAL ULCER
     Dosage: 40 mg, qd
     Route: 048

REACTIONS (2)
  - Gastrointestinal haemorrhage [Recovering/Resolving]
  - Drug interaction [Recovered/Resolved]
